FAERS Safety Report 6419182-5 (Version None)
Quarter: 2009Q4

REPORT INFORMATION
  Report Type: 
  Country: None (occurrence: None)
  Receive Date: 20091028
  Receipt Date: 20091028
  Transmission Date: 20100525
  Serious: No
  Sender: FDA-Public Use
  Company Number: None

PATIENT
  Age: 73 Year
  Sex: Male
  Weight: 82.5547 kg

DRUGS (1)
  1. ZETIA [Suspect]
     Indication: BLOOD CHOLESTEROL INCREASED
     Dosage: 1 TABLET DAILY DAILY PO
     Route: 048
     Dates: start: 20090818, end: 20090910

REACTIONS (12)
  - ARTHRALGIA [None]
  - ASTHENIA [None]
  - BURNING SENSATION [None]
  - CONTUSION [None]
  - GAIT DISTURBANCE [None]
  - MOVEMENT DISORDER [None]
  - MUSCULAR WEAKNESS [None]
  - MYALGIA [None]
  - NAUSEA [None]
  - PAIN [None]
  - PRURITUS [None]
  - VOMITING [None]
